FAERS Safety Report 18774914 (Version 3)
Quarter: 2021Q1

REPORT INFORMATION
  Report Type: Spontaneous
  Country: PL (occurrence: PL)
  Receive Date: 20210122
  Receipt Date: 20210315
  Transmission Date: 20210419
  Serious: Yes (Other)
  Sender: FDA-Public Use
  Company Number: PL-BEH-2021127330

PATIENT
  Sex: Female
  Weight: 3.6 kg

DRUGS (5)
  1. ANTI?D IMMUNOGLOBULIN (INN) [Suspect]
     Active Substance: HUMAN RHO(D) IMMUNE GLOBULIN
     Indication: PRODUCT USED FOR UNKNOWN INDICATION
     Dosage: 150 MICROGRAM, TOT
     Route: 065
     Dates: start: 20200212, end: 20200212
  2. AMPICILLIN [Concomitant]
     Active Substance: AMPICILLIN
     Route: 064
  3. EUTHYROX [Concomitant]
     Active Substance: LEVOTHYROXINE SODIUM
     Route: 064
  4. DUPHASTON [Concomitant]
     Active Substance: DYDROGESTERONE
     Route: 064
  5. ANTI?D IMMUNOGLOBULIN (INN) [Suspect]
     Active Substance: HUMAN RHO(D) IMMUNE GLOBULIN
     Dosage: 300 MICROGRAM, TOT
     Route: 065
     Dates: start: 20200910, end: 20200910

REACTIONS (4)
  - Anaemia neonatal [Unknown]
  - Foetal exposure during pregnancy [Unknown]
  - Rhesus haemolytic disease of newborn [Unknown]
  - Jaundice neonatal [Unknown]
